APPROVED DRUG PRODUCT: FEBUXOSTAT
Active Ingredient: FEBUXOSTAT
Strength: 80MG
Dosage Form/Route: TABLET;ORAL
Application: A210292 | Product #002 | TE Code: AB
Applicant: REGCON HOLDINGS LLC
Approved: Dec 30, 2019 | RLD: No | RS: No | Type: RX